FAERS Safety Report 9931676 (Version 1)
Quarter: 2014Q1

REPORT INFORMATION
  Report Type: Spontaneous
  Country: US (occurrence: None)
  Receive Date: 20140227
  Receipt Date: 20140227
  Transmission Date: 20141002
  Serious: Yes (Disabling)
  Sender: FDA-Public Use
  Company Number: None

PATIENT
  Age: 67 Year
  Sex: Female
  Weight: 95.26 kg

DRUGS (8)
  1. PROLIA [Suspect]
     Indication: OSTEOPOROSIS
     Dates: start: 20131202
  2. WELLBUTRIN [Concomitant]
  3. LOSARTAN POSTASSIUM [Concomitant]
  4. TRAMADOL [Concomitant]
  5. D3 [Concomitant]
  6. COLACE [Concomitant]
  7. PROBIOTICS [Concomitant]
  8. FIBER [Concomitant]

REACTIONS (3)
  - Arthralgia [None]
  - Myalgia [None]
  - Pain in extremity [None]
